FAERS Safety Report 8717931 (Version 2)
Quarter: 2015Q2

REPORT INFORMATION
  Report Type: Report from Study
  Country: US (occurrence: US)
  Receive Date: 20120810
  Receipt Date: 20150402
  Transmission Date: 20150821
  Serious: Yes (Hospitalization)
  Sender: FDA-Public Use
  Company Number: US-ROCHE-1099728

PATIENT
  Sex: Male

DRUGS (9)
  1. VASOTEC [Concomitant]
     Active Substance: ENALAPRIL MALEATE
  2. RESTORIL [Concomitant]
     Active Substance: TEMAZEPAM
     Route: 048
  3. ACTIVASE [Suspect]
     Active Substance: ALTEPLASE
     Route: 042
  4. ACTIVASE [Suspect]
     Active Substance: ALTEPLASE
     Indication: MYOCARDIAL INFARCTION
     Route: 042
  5. MORPHINE [Concomitant]
     Active Substance: MORPHINE
     Route: 042
  6. ASPIRIN. [Concomitant]
     Active Substance: ASPIRIN
     Route: 048
  7. ACTIVASE [Suspect]
     Active Substance: ALTEPLASE
     Indication: CHEST PAIN
     Route: 042
  8. ACTIVASE [Suspect]
     Active Substance: ALTEPLASE
     Route: 042
  9. NITROGLYCERIN. [Concomitant]
     Active Substance: NITROGLYCERIN

REACTIONS (1)
  - Chest discomfort [Unknown]
